FAERS Safety Report 9785838 (Version 4)
Quarter: 2014Q1

REPORT INFORMATION
  Report Type: Report from Study
  Country: JP (occurrence: JP)
  Receive Date: 20131227
  Receipt Date: 20140129
  Transmission Date: 20141002
  Serious: Yes (Hospitalization)
  Sender: FDA-Public Use
  Company Number: JP-SA-2013SA134428

PATIENT
  Age: 64 Year
  Sex: Male
  Weight: 88.5 kg

DRUGS (11)
  1. TAXOTERE [Suspect]
     Indication: LUNG CARCINOMA CELL TYPE UNSPECIFIED STAGE IV
     Route: 065
     Dates: start: 20131120, end: 20131120
  2. BLINDED THERAPY [Suspect]
     Indication: LUNG CARCINOMA CELL TYPE UNSPECIFIED STAGE IV
     Route: 065
     Dates: start: 20131120, end: 20131120
  3. CALONAL [Concomitant]
     Indication: PYREXIA
     Route: 065
     Dates: start: 20131203
  4. ALLELOCK [Concomitant]
     Indication: CONTRAST MEDIA ALLERGY
     Route: 065
     Dates: start: 20131204, end: 20131206
  5. LOXONIN [Concomitant]
     Indication: BACK PAIN
     Route: 065
     Dates: start: 20131105
  6. GLACTIV [Concomitant]
     Route: 065
     Dates: start: 2003
  7. LIPIDIL [Concomitant]
     Indication: DYSLIPIDAEMIA
     Route: 065
     Dates: start: 2003
  8. GLIMEPIRIDE [Concomitant]
     Indication: DIABETES MELLITUS
     Route: 065
     Dates: start: 2003
  9. PIOGLITAZONE [Concomitant]
     Indication: DIABETES MELLITUS
     Route: 065
     Dates: start: 2003
  10. MAGLAX [Concomitant]
     Indication: CONSTIPATION
     Route: 065
     Dates: start: 20130729
  11. GRANULOCYTE COLONY-STIMULATING FACTOR NOS [Concomitant]
     Indication: FEBRILE NEUTROPENIA
     Route: 065
     Dates: start: 20131126, end: 20131202

REACTIONS (1)
  - Pleurisy [Recovering/Resolving]
